FAERS Safety Report 18125084 (Version 2)
Quarter: 2020Q3

REPORT INFORMATION
  Report Type: Spontaneous
  Country: NL (occurrence: NL)
  Receive Date: 20200807
  Receipt Date: 20200831
  Transmission Date: 20201103
  Serious: Yes (Life-Threatening, Hospitalization, Other)
  Sender: FDA-Public Use
  Company Number: NL-PERRIGO-20NL010760

PATIENT
  Age: 35 Year
  Sex: Male
  Weight: 89 kg

DRUGS (15)
  1. PARACETAMOL [Suspect]
     Active Substance: ACETAMINOPHEN
     Indication: PYREXIA
     Dosage: UNK
     Route: 065
     Dates: start: 202002
  2. LOPINAVIR/RITONAVIR [Suspect]
     Active Substance: LOPINAVIR\RITONAVIR
     Indication: ANTIVIRAL TREATMENT
     Dosage: 1 DF
     Route: 065
     Dates: start: 202003, end: 202003
  3. CEFUROXIME. [Suspect]
     Active Substance: CEFUROXIME
     Indication: COVID-19
     Route: 042
     Dates: start: 202003, end: 202003
  4. PREDNISOLONE. [Suspect]
     Active Substance: PREDNISOLONE
     Indication: IMMUNOSUPPRESSANT DRUG THERAPY
     Dosage: 7.5 MG, QD
     Route: 065
     Dates: start: 2016
  5. LOPINAVIR/RITONAVIR [Suspect]
     Active Substance: LOPINAVIR\RITONAVIR
     Indication: COVID-19 PNEUMONIA
  6. TRAMADOL. [Concomitant]
     Active Substance: TRAMADOL
     Indication: PYREXIA
  7. EVEROLIMUS. [Interacting]
     Active Substance: EVEROLIMUS
     Indication: IMMUNOSUPPRESSANT DRUG THERAPY
  8. TRAMADOL. [Concomitant]
     Active Substance: TRAMADOL
     Indication: MYALGIA
     Dosage: UNK
     Route: 065
     Dates: start: 202002
  9. TRAMADOL. [Concomitant]
     Active Substance: TRAMADOL
     Indication: COUGH
  10. LOPINAVIR/RITONAVIR [Suspect]
     Active Substance: LOPINAVIR\RITONAVIR
     Indication: COVID-19
  11. EVEROLIMUS. [Interacting]
     Active Substance: EVEROLIMUS
     Indication: RENAL TRANSPLANT
     Dosage: TARGETED TROUGH CONCENTRATIONS BETWEEN 3?8 MICROG/L.
     Route: 065
     Dates: start: 2016, end: 202003
  12. TRAMADOL. [Concomitant]
     Active Substance: TRAMADOL
     Indication: MALAISE
  13. TRAMADOL. [Concomitant]
     Active Substance: TRAMADOL
     Indication: HEADACHE
     Dosage: UNK
  14. CEFTRIAXONE. [Suspect]
     Active Substance: CEFTRIAXONE
     Indication: COVID-19
     Route: 042
     Dates: start: 202003
  15. CHLOROQUINE. [Interacting]
     Active Substance: CHLOROQUINE
     Indication: COVID-19 PNEUMONIA
     Dosage: 600 MG LOADING DOSE
     Route: 048
     Dates: start: 20200310, end: 202003

REACTIONS (36)
  - Cough [Recovering/Resolving]
  - Pyrexia [Recovering/Resolving]
  - COVID-19 pneumonia [Recovering/Resolving]
  - Nasal congestion [Recovering/Resolving]
  - Renal impairment [Recovering/Resolving]
  - Interstitial lung disease [Recovered/Resolved]
  - Condition aggravated [Recovered/Resolved]
  - Pneumococcal infection [Unknown]
  - Tubulointerstitial nephritis [Not Recovered/Not Resolved]
  - Tachypnoea [Recovering/Resolving]
  - Rhinorrhoea [Recovering/Resolving]
  - Respiratory failure [Recovered/Resolved]
  - Acute pulmonary oedema [Recovered/Resolved]
  - Transaminases increased [Recovered/Resolved]
  - Acute respiratory distress syndrome [Recovering/Resolving]
  - Drug interaction [Recovering/Resolving]
  - Hypoxia [Recovering/Resolving]
  - Dyspnoea [Recovering/Resolving]
  - Vomiting [Recovering/Resolving]
  - COVID-19 [Recovered/Resolved]
  - Lymphopenia [Recovering/Resolving]
  - Acute kidney injury [Recovering/Resolving]
  - Renal failure [Recovering/Resolving]
  - Toxicity to various agents [Recovered/Resolved]
  - Diarrhoea [Recovering/Resolving]
  - Rales [Recovering/Resolving]
  - Respiratory alkalosis [Recovered/Resolved]
  - Headache [Recovering/Resolving]
  - Rhabdomyolysis [Recovered/Resolved]
  - Malaise [Recovering/Resolving]
  - Metabolic acidosis [Recovering/Resolving]
  - Productive cough [Recovering/Resolving]
  - Lung consolidation [Recovering/Resolving]
  - Myalgia [Recovering/Resolving]
  - Off label use [Recovering/Resolving]
  - Nausea [Recovering/Resolving]

NARRATIVE: CASE EVENT DATE: 202002
